FAERS Safety Report 7622903-7 (Version None)
Quarter: 2011Q3

REPORT INFORMATION
  Report Type: 
  Country: None (occurrence: None)
  Receive Date: 20110720
  Receipt Date: 20091122
  Transmission Date: 20111222
  Serious: Yes (Death, Other)
  Sender: FDA-Public Use
  Company Number: US-BAYER-200940658NA

PATIENT
  Age: 79 Year
  Sex: Male
  Weight: 88 kg

DRUGS (26)
  1. TRASYLOL [Suspect]
     Indication: AORTIC VALVE REPLACEMENT
     Dosage: 200 ML LOADING DOSE
     Route: 042
     Dates: start: 20041105, end: 20041105
  2. AMIODARONE HCL [Concomitant]
     Dosage: UNK
     Dates: start: 20041105, end: 20041106
  3. CONTRAST MEDIA [Concomitant]
     Indication: CATHETERISATION CARDIAC
  4. DIOVAN [Concomitant]
     Dosage: 160 MG, UNK
     Route: 048
  5. PLAVIX [Concomitant]
     Dosage: 75 MG, UNK
     Route: 048
     Dates: start: 20041101, end: 20041102
  6. TRASYLOL [Suspect]
     Indication: CORONARY ARTERY BYPASS
     Dosage: 200 ML CARDIOPULMONARY BYPASS PRIME
     Dates: start: 20041105, end: 20041105
  7. TOPROL-XL [Concomitant]
     Dosage: 25 MG, UNK
     Route: 048
     Dates: start: 20041101
  8. HYDROCHLOROTHIAZIDE [Concomitant]
     Dosage: 25 MG, UNK
     Route: 048
     Dates: start: 20041101
  9. PROPOFOL [Concomitant]
     Dosage: 100
     Dates: start: 20041105
  10. ZINACEF [Concomitant]
     Dosage: 1.5 G, UNK
     Route: 042
     Dates: start: 20041105
  11. ACETYLSALICYLIC ACID SRT [Concomitant]
     Dosage: 81 MG, UNK
     Route: 048
     Dates: start: 20041101
  12. NORVASC [Concomitant]
     Dosage: 5 MG, UNK
     Route: 048
     Dates: start: 20041101
  13. PROTONIX [Concomitant]
     Dosage: 40 MG, UNK
     Route: 048
     Dates: start: 20041110
  14. SUFENTANIL CITRATE [Concomitant]
     Dosage: 90
     Route: 042
     Dates: start: 20041105
  15. RED BLOOD CELLS [Concomitant]
     Dosage: 5 U, UNK
     Route: 042
     Dates: start: 20041105
  16. ZOCOR [Concomitant]
     Dosage: 20 MG, UNK
     Route: 048
     Dates: start: 20041101
  17. LOVENOX [Concomitant]
     Dosage: 40 MG, UNK
     Route: 058
     Dates: start: 20041103, end: 20041104
  18. VERSED [Concomitant]
     Dosage: UNK
     Dates: start: 20041105
  19. HEPARIN [Concomitant]
     Dosage: UNK
     Dates: start: 20041105
  20. VERSED [Concomitant]
     Dosage: 9 MG, UNK
     Route: 042
     Dates: start: 20041105
  21. TRASYLOL [Suspect]
     Dosage: 50 ML/HR
     Route: 042
     Dates: start: 20041105, end: 20041105
  22. CLONIDINE [Concomitant]
     Dosage: 0.1 MG, UNK
     Route: 048
     Dates: start: 20041102
  23. FENTANYL-100 [Concomitant]
     Dosage: UNK
     Route: 042
     Dates: start: 20041105
  24. PLATELETS [Concomitant]
     Dosage: 20 U, UNK
     Route: 042
     Dates: start: 20041105
  25. CRYOPRECIPITATES [Concomitant]
     Dosage: 10 U, UNK
     Route: 042
     Dates: start: 20041105
  26. FRESH FROZEN PLASMA [Concomitant]
     Dosage: 4 U, UNK
     Route: 042
     Dates: start: 20041105

REACTIONS (25)
  - PNEUMONIA [None]
  - RENAL FAILURE [None]
  - SEPSIS [None]
  - CARDIAC FAILURE CONGESTIVE [None]
  - HYPERTENSIVE HEART DISEASE [None]
  - HYPOTENSION [None]
  - EMOTIONAL DISTRESS [None]
  - ANXIETY [None]
  - DEATH [None]
  - PLEURAL EFFUSION [None]
  - RENAL IMPAIRMENT [None]
  - INJURY [None]
  - STRESS [None]
  - MULTI-ORGAN FAILURE [None]
  - CORONARY ARTERY DISEASE [None]
  - BRONCHITIS CHRONIC [None]
  - RENAL INJURY [None]
  - AORTIC VALVE DISEASE [None]
  - ATRIAL FIBRILLATION [None]
  - DECUBITUS ULCER [None]
  - UNEVALUABLE EVENT [None]
  - HYPERTENSION [None]
  - PAIN [None]
  - FEAR [None]
  - ANHEDONIA [None]
